FAERS Safety Report 18355350 (Version 13)
Quarter: 2021Q4

REPORT INFORMATION
  Report Type: Report from Study
  Country: IT (occurrence: None)
  Receive Date: 20201007
  Receipt Date: 20211217
  Transmission Date: 20220303
  Serious: Yes (Hospitalization)
  Sender: FDA-Public Use
  Company Number: IT-EISAI MEDICAL RESEARCH-EC-2020-081681

PATIENT
  Age: 68 Year
  Sex: Female
  Weight: 90 kg

DRUGS (11)
  1. LENVATINIB [Suspect]
     Active Substance: LENVATINIB
     Indication: Endometrial cancer
     Dosage: STARTING DOSE 20 MILLIGRAM, FLUCTUATED DOSE
     Route: 048
     Dates: start: 20191121, end: 20200928
  2. LENVATINIB [Suspect]
     Active Substance: LENVATINIB
     Route: 048
     Dates: start: 20200929, end: 20200929
  3. PEMBROLIZUMAB [Suspect]
     Active Substance: PEMBROLIZUMAB
     Indication: Endometrial cancer
     Route: 041
     Dates: start: 20191121, end: 20200819
  4. PEMBROLIZUMAB [Suspect]
     Active Substance: PEMBROLIZUMAB
     Route: 041
     Dates: start: 20200909, end: 20200909
  5. PEMBROLIZUMAB [Suspect]
     Active Substance: PEMBROLIZUMAB
     Route: 041
     Dates: start: 20201013
  6. ARIXTRA [Concomitant]
     Active Substance: FONDAPARINUX SODIUM
     Route: 058
     Dates: start: 201809
  7. LOVASTATIN [Concomitant]
     Active Substance: LOVASTATIN
     Dates: start: 201501
  8. RAMIPRIL [Concomitant]
     Active Substance: RAMIPRIL
     Dates: start: 20191129
  9. ACETAMINOPHEN [Concomitant]
     Active Substance: ACETAMINOPHEN
     Dates: start: 20191030
  10. METHYLPREDNISOLONE [Concomitant]
     Active Substance: METHYLPREDNISOLONE
     Dates: start: 20200729, end: 20201130
  11. EZETIMIBE [Concomitant]
     Active Substance: EZETIMIBE
     Dates: start: 20200730

REACTIONS (1)
  - ECG signs of myocardial ischaemia [Recovered/Resolved]

NARRATIVE: CASE EVENT DATE: 20200930
